FAERS Safety Report 10550543 (Version 8)
Quarter: 2015Q2

REPORT INFORMATION
  Report Type: Report from Study
  Country: US (occurrence: US)
  Receive Date: 20141029
  Receipt Date: 20150507
  Transmission Date: 20150821
  Serious: Yes (Death, Hospitalization, Other)
  Sender: FDA-Public Use
  Company Number: US-BIOGENIDEC-2014BI110824

PATIENT
  Age: 32 Year
  Sex: Male
  Weight: 65 kg

DRUGS (3)
  1. VITAMIN D3 [Concomitant]
     Active Substance: CHOLECALCIFEROL
     Route: 048
  2. TYSABRI [Suspect]
     Active Substance: NATALIZUMAB
     Indication: MULTIPLE SCLEROSIS
     Route: 042
     Dates: start: 20140828, end: 20140925
  3. CITALOPRAM [Concomitant]
     Active Substance: CITALOPRAM HYDROBROMIDE
     Route: 048

REACTIONS (6)
  - Dysarthria [Unknown]
  - Death [Fatal]
  - Labyrinthitis [Unknown]
  - Immune reconstitution inflammatory syndrome [Unknown]
  - HIV infection [Unknown]
  - Progressive multifocal leukoencephalopathy [Not Recovered/Not Resolved]

NARRATIVE: CASE EVENT DATE: 20141228
